FAERS Safety Report 18150561 (Version 1)
Quarter: 2020Q3

REPORT INFORMATION
  Report Type: Spontaneous
  Country: US (occurrence: US)
  Receive Date: 20200814
  Receipt Date: 20200814
  Transmission Date: 20201103
  Serious: No
  Sender: FDA-Public Use
  Company Number: None

PATIENT
  Age: 63 Year
  Sex: Male
  Weight: 92.25 kg

DRUGS (4)
  1. CLARITHROMYCIN. [Suspect]
     Active Substance: CLARITHROMYCIN
     Indication: BRONCHITIS
     Dosage: ?          QUANTITY:2 TABLET(S);?
     Route: 048
     Dates: start: 20200529, end: 20200606
  2. ALIVE MULTIVITAMIN FOR MEN ? DAILY VITAMIN [Concomitant]
  3. ZINC. [Concomitant]
     Active Substance: ZINC
  4. VITAMIN C [Concomitant]
     Active Substance: ASCORBIC ACID

REACTIONS (6)
  - Product quality issue [None]
  - Product taste abnormal [None]
  - Product odour abnormal [None]
  - Diarrhoea [None]
  - Drug ineffective [None]
  - Manufacturing production issue [None]

NARRATIVE: CASE EVENT DATE: 20200529
